FAERS Safety Report 21534075 (Version 1)
Quarter: 2022Q4

REPORT INFORMATION
  Report Type: Spontaneous
  Country: US (occurrence: US)
  Receive Date: 20221101
  Receipt Date: 20221101
  Transmission Date: 20230113
  Serious: No
  Sender: FDA-Public Use
  Company Number: US-PARATEK PHARMACEUTICALS, INC.-2022PTK00207

PATIENT
  Sex: Female

DRUGS (3)
  1. NUZYRA [Suspect]
     Active Substance: OMADACYCLINE
     Dosage: 300 MG, 1X/DAY
  2. IMIPENEM [Concomitant]
     Active Substance: IMIPENEM
     Dosage: UNK, 2X/DAY
  3. CEFTAROLINE [Concomitant]
     Active Substance: CEFTAROLINE
     Dosage: UNK, 2X/DAY

REACTIONS (3)
  - Abdominal pain upper [Unknown]
  - Nausea [Unknown]
  - Incorrect dose administered [Unknown]
